FAERS Safety Report 11859378 (Version 1)
Quarter: 2015Q4

REPORT INFORMATION
  Report Type: Spontaneous
  Country: US (occurrence: US)
  Receive Date: 20151221
  Receipt Date: 20151221
  Transmission Date: 20160305
  Serious: No
  Sender: FDA-Public Use
  Company Number: GXBR2015US002546

PATIENT
  Sex: Male

DRUGS (2)
  1. PROAIR HFA [Concomitant]
     Active Substance: ALBUTEROL SULFATE
     Indication: ASTHMA
     Dosage: UNK DF, UNK
     Route: 055
  2. AMOXICILLIN. [Suspect]
     Active Substance: AMOXICILLIN
     Indication: PRODUCT USED FOR UNKNOWN INDICATION
     Dosage: 2 TSP, BID
     Route: 048
     Dates: start: 20151102, end: 20151107

REACTIONS (3)
  - Hypersensitivity [Unknown]
  - Rash [Unknown]
  - Urticaria [Unknown]
